FAERS Safety Report 6683011-5 (Version None)
Quarter: 2010Q2

REPORT INFORMATION
  Report Type: 
  Country: None (occurrence: None)
  Receive Date: 20100413
  Receipt Date: 20100329
  Transmission Date: 20101027
  Serious: Yes (Life-Threatening)
  Sender: FDA-Public Use
  Company Number: 2010AL002062

PATIENT
  Age: 52 Year
  Sex: Female

DRUGS (4)
  1. FEVERALL [Suspect]
     Indication: POSTOPERATIVE ANALGESIA
     Dosage: 650 MG
     Route: 054
     Dates: start: 20100319, end: 20100319
  2. DICLOFENAC [Concomitant]
  3. ENALAPRIL MALEATE [Concomitant]
  4. NICOTINE [Concomitant]

REACTIONS (1)
  - ANAPHYLACTIC REACTION [None]
